FAERS Safety Report 9825995 (Version 1)
Quarter: 2014Q1

REPORT INFORMATION
  Report Type: Spontaneous
  Country: TR (occurrence: None)
  Receive Date: 20140115
  Receipt Date: 20140115
  Transmission Date: 20141002
  Serious: Yes (Death, Hospitalization)
  Sender: FDA-Public Use
  Company Number: UTC-043103

PATIENT
  Age: 83 Year
  Sex: Female

DRUGS (3)
  1. REMODULIN (INJECTION FOR INFUSION) (TREPROSTINIL SODIUM) [Suspect]
     Indication: PULMONARY ARTERIAL HYPERTENSION
     Dosage: 0.020 ML/HR
     Route: 058
     Dates: start: 20131108
  2. BOSENTAN [Concomitant]
  3. SILDENAFIL [Concomitant]

REACTIONS (1)
  - Right ventricular failure [None]
